FAERS Safety Report 7488994-1 (Version None)
Quarter: 2011Q2

REPORT INFORMATION
  Report Type: 
  Country: None (occurrence: None)
  Receive Date: 20110518
  Receipt Date: 20110509
  Transmission Date: 20111010
  Serious: No
  Sender: FDA-Public Use
  Company Number: US-ROXANE LABORATORIES, INC.-2011-RO-00633RO

PATIENT
  Sex: Female

DRUGS (21)
  1. PREDNISONE [Suspect]
     Indication: PARAESTHESIA ORAL
  2. PREDNISONE [Suspect]
     Indication: ORAL DISCOMFORT
  3. STEROIDS [Concomitant]
     Indication: SWOLLEN TONGUE
  4. PREDNISONE [Suspect]
     Indication: SWOLLEN TONGUE
  5. BENADRYL [Concomitant]
     Indication: PARAESTHESIA ORAL
  6. STEROIDS [Concomitant]
     Indication: OEDEMA MOUTH
  7. PREDNISONE [Suspect]
     Indication: GLOSSODYNIA
  8. BENADRYL [Concomitant]
     Indication: OEDEMA MOUTH
  9. BENADRYL [Concomitant]
     Indication: SWOLLEN TONGUE
  10. BENADRYL [Concomitant]
     Indication: LIP SWELLING
  11. STEROIDS [Concomitant]
     Indication: PARAESTHESIA ORAL
     Route: 061
  12. BENADRYL [Concomitant]
     Indication: BURNING SENSATION
  13. STEROIDS [Concomitant]
     Indication: LIP SWELLING
  14. STEROIDS [Concomitant]
     Indication: BURNING SENSATION
  15. STEROIDS [Concomitant]
     Indication: ORAL DISCOMFORT
  16. STEROIDS [Concomitant]
     Indication: GLOSSODYNIA
  17. BENADRYL [Concomitant]
     Indication: GLOSSODYNIA
  18. PREDNISONE [Suspect]
     Indication: LIP SWELLING
  19. PREDNISONE [Suspect]
     Indication: OEDEMA MOUTH
  20. PREDNISONE [Suspect]
     Indication: BURNING SENSATION
  21. BENADRYL [Concomitant]
     Indication: ORAL DISCOMFORT

REACTIONS (1)
  - DRUG INEFFECTIVE [None]
